FAERS Safety Report 10360396 (Version 3)
Quarter: 2014Q4

REPORT INFORMATION
  Report Type: Report from Study
  Country: US (occurrence: US)
  Receive Date: 20140804
  Receipt Date: 20141231
  Transmission Date: 20150528
  Serious: Yes (Other)
  Sender: FDA-Public Use
  Company Number: PHEH2014US009605

PATIENT
  Age: 64 Year
  Sex: Female
  Weight: 60.77 kg

DRUGS (8)
  1. BACLOFEN. [Concomitant]
     Active Substance: BACLOFEN
  2. PROCHLORPERAZINE. [Concomitant]
     Active Substance: PROCHLORPERAZINE
  3. GILENYA [Suspect]
     Active Substance: FINGOLIMOD HYDROCHLORIDE
     Indication: MULTIPLE SCLEROSIS
     Dosage: 0.5 MG, QD
     Route: 048
     Dates: start: 20140107
  4. NORCO [Concomitant]
     Active Substance: ACETAMINOPHEN\HYDROCODONE BITARTRATE
  5. AMBIEN [Concomitant]
     Active Substance: ZOLPIDEM TARTRATE
  6. ACYCLOVIR. [Concomitant]
     Active Substance: ACYCLOVIR
  7. CLONAZEPAM. [Concomitant]
     Active Substance: CLONAZEPAM
  8. ATENOLOL. [Concomitant]
     Active Substance: ATENOLOL

REACTIONS (23)
  - Subdural haematoma [Unknown]
  - Gait disturbance [Not Recovered/Not Resolved]
  - Anxiety [Unknown]
  - Cognitive disorder [Recovering/Resolving]
  - Depression [Unknown]
  - Multiple sclerosis relapse [Unknown]
  - Balance disorder [Recovering/Resolving]
  - Tremor [Unknown]
  - Leukopenia [Unknown]
  - Head injury [Unknown]
  - Headache [Recovering/Resolving]
  - Fall [Unknown]
  - Tooth disorder [Unknown]
  - Confusional state [Unknown]
  - Nausea [Unknown]
  - Dizziness [Unknown]
  - Face injury [Unknown]
  - Memory impairment [Not Recovered/Not Resolved]
  - Brain injury [Unknown]
  - Insomnia [Unknown]
  - Bruxism [Unknown]
  - Visual impairment [Not Recovered/Not Resolved]
  - Vertigo [Unknown]

NARRATIVE: CASE EVENT DATE: 20140514
